FAERS Safety Report 6157840-0 (Version None)
Quarter: 2009Q2

REPORT INFORMATION
  Report Type: 
  Country: None (occurrence: None)
  Receive Date: 20090414
  Receipt Date: 20090330
  Transmission Date: 20091009
  Serious: Yes (Hospitalization)
  Sender: FDA-Public Use
  Company Number: 2009S1005822

PATIENT
  Age: 84 Year
  Sex: Female
  Weight: 70 kg

DRUGS (7)
  1. IBUPROFEN [Suspect]
     Indication: OSTEOARTHRITIS
     Dosage: 600 MG; TWICE A DAY; ORAL
     Route: 048
     Dates: start: 20080601, end: 20080805
  2. AGGRENOX [Suspect]
     Indication: THROMBOSIS PROPHYLAXIS
     Dosage: 1 DF; TWICE  A DAY; ORAL
     Route: 048
     Dates: start: 20040501, end: 20080805
  3. VASERETIC [Suspect]
     Indication: HYPERTENSION
     Dosage: 1 DF; DAILY; ORAL
     Route: 048
     Dates: start: 20060501, end: 20080805
  4. INDOMETHACIN [Suspect]
     Indication: OSTEOARTHRITIS
     Dosage: 50 MG; TWICE A DAY; ORAL
     Route: 048
     Dates: start: 20080601, end: 20080701
  5. FELOCOR [Concomitant]
  6. LEVOTHYROXINE SODIUM [Concomitant]
  7. METOCLOPRAMIDE [Concomitant]

REACTIONS (11)
  - ARTERIOSCLEROSIS [None]
  - BLOOD PRESSURE SYSTOLIC INCREASED [None]
  - DEHYDRATION [None]
  - GASTRITIS EROSIVE [None]
  - GROIN PAIN [None]
  - HYPOKALAEMIA [None]
  - HYPONATRAEMIA [None]
  - LIVER DISORDER [None]
  - OSTEOARTHRITIS [None]
  - RENAL DISORDER [None]
  - URINARY TRACT INFECTION [None]
